FAERS Safety Report 9325261 (Version 1)
Quarter: 2013Q2

REPORT INFORMATION
  Report Type: Spontaneous
  Country: GB (occurrence: GB)
  Receive Date: 20130604
  Receipt Date: 20130604
  Transmission Date: 20140414
  Serious: Yes (Other)
  Sender: FDA-Public Use
  Company Number: GB-ROCHE-1210715

PATIENT
  Age: 60 Year
  Sex: Female
  Weight: 72.9 kg

DRUGS (3)
  1. HERCEPTIN [Suspect]
     Indication: PRODUCT USED FOR UNKNOWN INDICATION
     Route: 042
     Dates: start: 20130312
  2. HERCEPTIN [Suspect]
     Route: 065
     Dates: start: 20130403
  3. PIRITON [Concomitant]
     Indication: HYPERSENSITIVITY
     Route: 048
     Dates: start: 20130403

REACTIONS (1)
  - Swelling face [Recovered/Resolved]
